FAERS Safety Report 7896661-5 (Version None)
Quarter: 2011Q4

REPORT INFORMATION
  Report Type: 
  Country: None (occurrence: None)
  Receive Date: 20111104
  Receipt Date: 20111104
  Transmission Date: 20120403
  Serious: No
  Sender: FDA-Public Use
  Company Number: None

PATIENT
  Sex: Female

DRUGS (2)
  1. VENLAFAXINE [Suspect]
     Indication: ANXIETY DISORDER
     Dosage: 100 MG 1 DAILY PO; 150 MG 1 DAILY PO
     Route: 048
     Dates: start: 20070201, end: 20070201
  2. VENLAFAXINE [Suspect]
     Indication: ANXIETY DISORDER
     Dosage: 100 MG 1 DAILY PO; 150 MG 1 DAILY PO
     Route: 048
     Dates: start: 20070201, end: 20110401

REACTIONS (5)
  - FATIGUE [None]
  - ANXIETY [None]
  - PAIN [None]
  - DIZZINESS [None]
  - ABDOMINAL DISTENSION [None]
